FAERS Safety Report 4886263-7 (Version None)
Quarter: 2006Q1

REPORT INFORMATION
  Report Type: 
  Country: None (occurrence: None)
  Receive Date: 20060118
  Receipt Date: 20051213
  Transmission Date: 20060701
  Serious: Yes (Hospitalization)
  Sender: FDA-Public Use
  Company Number: US016174

PATIENT
  Age: 55 Year
  Sex: Female
  Weight: 67.586 kg

DRUGS (3)
  1. GABITRIL [Suspect]
     Indication: GENERALISED ANXIETY DISORDER
     Dosage: 8 MG BID ORAL
     Route: 048
     Dates: start: 20050720, end: 20050928
  2. GABITRIL [Suspect]
     Indication: GENERALISED ANXIETY DISORDER
     Dates: start: 20050929, end: 20051003
  3. GABITRIL [Suspect]
     Indication: GENERALISED ANXIETY DISORDER
     Dosage: 144 MG ONCE ORAL
     Route: 048
     Dates: start: 20051009, end: 20051009

REACTIONS (17)
  - AGITATION [None]
  - AMNESIA [None]
  - APHASIA [None]
  - BACTERIA URINE IDENTIFIED [None]
  - BLOOD CHOLESTEROL INCREASED [None]
  - BLOOD TRIGLYCERIDES INCREASED [None]
  - COMMUNICATION DISORDER [None]
  - CONFUSIONAL STATE [None]
  - DISORIENTATION [None]
  - ESCHERICHIA INFECTION [None]
  - FALL [None]
  - INTENTIONAL OVERDOSE [None]
  - MENTAL STATUS CHANGES [None]
  - MUSCLE TWITCHING [None]
  - SUICIDAL IDEATION [None]
  - SUICIDE ATTEMPT [None]
  - TRANSIENT ISCHAEMIC ATTACK [None]
